FAERS Safety Report 9651408 (Version 5)
Quarter: 2014Q2

REPORT INFORMATION
  Report Type: Spontaneous
  Country: US (occurrence: US)
  Receive Date: 20131029
  Receipt Date: 20140530
  Transmission Date: 20141212
  Serious: Yes (Hospitalization, Other)
  Sender: FDA-Public Use
  Company Number: US-009507513-1202USA00211

PATIENT
  Sex: Female
  Weight: 53.52 kg

DRUGS (9)
  1. FOSAMAX [Suspect]
     Indication: OSTEOPENIA
     Dosage: 70 MG, QW
     Route: 048
     Dates: start: 20020131, end: 20071231
  2. FOSAMAX [Suspect]
     Dosage: UNK MG, UNK
     Route: 048
     Dates: start: 20070328, end: 200802
  3. FOSAMAX [Suspect]
     Dosage: 70 MG, UNK
     Route: 048
     Dates: start: 20030918, end: 20051215
  4. FOSAMAX [Suspect]
     Indication: OSTEOPENIA
     Route: 048
     Dates: start: 200802
  5. ALENDRONATE SODIUM [Suspect]
     Indication: OSTEOPENIA
     Dosage: UNK
     Route: 048
     Dates: start: 200801, end: 20081013
  6. ALENDRONATE SODIUM [Suspect]
     Dosage: UNK
     Route: 048
     Dates: start: 200901, end: 20100201
  7. HORMONES (UNSPECIFIED) [Concomitant]
     Dosage: UNK
     Dates: start: 1991
  8. PREMARIN [Concomitant]
     Dosage: 0.625-0.3MG QD DAYS 1-25
     Dates: start: 1994
  9. PROVERA [Concomitant]
     Dosage: DAYS 15-25

REACTIONS (29)
  - Intramedullary rod insertion [Unknown]
  - Intramedullary rod insertion [Unknown]
  - Parathyroidectomy [Unknown]
  - Basal cell carcinoma [Unknown]
  - Femur fracture [Recovered/Resolved]
  - Femur fracture [Recovered/Resolved]
  - Skin neoplasm excision [Unknown]
  - Fracture delayed union [Unknown]
  - Low turnover osteopathy [Unknown]
  - Hypoparathyroidism [Unknown]
  - Osteoporosis [Unknown]
  - Scoliosis [Unknown]
  - Migraine [Unknown]
  - Vitamin D decreased [Unknown]
  - Cardiomegaly [Unknown]
  - Hyperparathyroidism primary [Unknown]
  - Rosacea [Unknown]
  - Cataract [Unknown]
  - Ocular hypertension [Unknown]
  - Electrocardiogram ST-T change [Unknown]
  - Device failure [Unknown]
  - Medical device removal [Unknown]
  - Muscle atrophy [Unknown]
  - Muscular weakness [Unknown]
  - Spinal osteoarthritis [Unknown]
  - Hypercalciuria [Unknown]
  - Urinary retention [Not Recovered/Not Resolved]
  - Sciatica [Unknown]
  - Nephrolithiasis [Unknown]
